FAERS Safety Report 5847556-X (Version None)
Quarter: 2008Q3

REPORT INFORMATION
  Report Type: 
  Country: None (occurrence: None)
  Receive Date: 20080817
  Receipt Date: 20080805
  Transmission Date: 20090109
  Serious: Yes (Other)
  Sender: FDA-Public Use
  Company Number: GB-BAUSCH-2008BL003371

PATIENT
  Age: 59 Year
  Sex: Female

DRUGS (11)
  1. CYCLOPENTOLATE HCL [Suspect]
     Indication: CYCLOPLEGIA
     Route: 047
     Dates: start: 20080429, end: 20080429
  2. MINIMS PHENYLEPHRINE HYDROCHLORIDE 10% [Suspect]
     Indication: MYDRIASIS
     Route: 047
     Dates: start: 20080429, end: 20080429
  3. ADRENALINE [Suspect]
     Dates: start: 20080429, end: 20080429
  4. CEFUROXIME [Suspect]
     Dates: start: 20080429, end: 20080429
  5. HYALURONATE SODIUM [Suspect]
     Dates: start: 20080429, end: 20080429
  6. BALANCED SALT [Suspect]
     Route: 031
     Dates: start: 20080429, end: 20080429
  7. VOLTAREN [Suspect]
     Route: 047
     Dates: start: 20080429, end: 20080429
  8. CO-DYDRAMOL [Concomitant]
     Route: 048
  9. FLUOXETINE /N/A/ [Concomitant]
     Route: 048
  10. MAXITROL /INO/ [Concomitant]
     Route: 047
     Dates: start: 20080429
  11. POVIDONE IODINE [Concomitant]
     Route: 061
     Dates: start: 20080429, end: 20080429

REACTIONS (2)
  - BLINDNESS [None]
  - CORNEAL ABRASION [None]
